FAERS Safety Report 7886872-7 (Version None)
Quarter: 2011Q4

REPORT INFORMATION
  Report Type: 
  Country: None (occurrence: None)
  Receive Date: 20111102
  Receipt Date: 20110712
  Transmission Date: 20120403
  Serious: No
  Sender: FDA-Public Use
  Company Number: US-AMGEN-USASP2011035425

PATIENT
  Age: 65 Year
  Sex: Female

DRUGS (2)
  1. ENBREL [Suspect]
     Indication: RHEUMATOID ARTHRITIS
     Dosage: UNK
     Dates: start: 20100301
  2. METHOTREXATE [Concomitant]
     Dosage: 8 MG, QWK
     Dates: start: 20060101

REACTIONS (2)
  - INJECTION SITE HAEMATOMA [None]
  - ARTHRALGIA [None]
